FAERS Safety Report 9321513 (Version 2)
Quarter: 2013Q2

REPORT INFORMATION
  Report Type: Spontaneous
  Country: US (occurrence: US)
  Receive Date: 20130531
  Receipt Date: 20130611
  Transmission Date: 20140414
  Serious: Yes (Other)
  Sender: FDA-Public Use
  Company Number: US-BRISTOL-MYERS SQUIBB COMPANY-18930990

PATIENT
  Age: 68 Year
  Sex: Male
  Weight: 82.54 kg

DRUGS (21)
  1. BYETTA [Suspect]
     Indication: TYPE 2 DIABETES MELLITUS
     Dosage: DOSE INCREASED TO 10MCG?INTER AND RESUMED
     Route: 058
     Dates: start: 200902
  2. LANTUS [Concomitant]
  3. INSULIN [Concomitant]
  4. WARFARIN SODIUM [Concomitant]
     Indication: ATRIAL FIBRILLATION
  5. AMIODARONE [Concomitant]
  6. ATORVASTATIN [Concomitant]
  7. OMEPRAZOLE [Concomitant]
  8. GLIPIZIDE [Concomitant]
  9. METFORMIN [Concomitant]
  10. METOPROLOL [Concomitant]
  11. ASPIRIN [Concomitant]
  12. VITAMIN D [Concomitant]
  13. IRON SUPPLEMENT [Concomitant]
  14. VITAMIN C [Concomitant]
  15. GABAPENTIN [Concomitant]
  16. QUINAPRIL [Concomitant]
  17. MULTIPLE VITAMINS [Concomitant]
  18. MELOXICAM [Concomitant]
  19. MENTAX [Concomitant]
     Indication: NEUROPATHY PERIPHERAL
  20. ZOLPIDEM [Concomitant]
  21. PERCOCET [Concomitant]

REACTIONS (6)
  - Coronary artery disease [Unknown]
  - Atrial fibrillation [Unknown]
  - Weight decreased [Unknown]
  - Dizziness [Recovered/Resolved]
  - Headache [Unknown]
  - Abdominal discomfort [Unknown]
